FAERS Safety Report 8645903 (Version 4)
Quarter: 2013Q1

REPORT INFORMATION
  Report Type: Spontaneous
  Country: TR (occurrence: TR)
  Receive Date: 20120702
  Receipt Date: 20130108
  Transmission Date: 20140127
  Serious: Yes (Hospitalization)
  Sender: FDA-Public Use
  Company Number: TR-GLAXOSMITHKLINE-B0811651A

PATIENT
  Age: 50 Year
  Sex: Male

DRUGS (5)
  1. LAMICTAL [Suspect]
     Indication: BIPOLAR DISORDER
     Dosage: 12.5MG PER DAY
     Route: 048
     Dates: start: 2012, end: 2013
  2. WELLBUTRIN [Suspect]
     Indication: DEPRESSION
     Dosage: 150MG PER DAY
     Route: 048
     Dates: start: 20120514, end: 20120627
  3. LITHIUM [Suspect]
     Indication: BIPOLAR DISORDER
     Dosage: 900MG PER DAY
     Route: 048
     Dates: start: 20120612, end: 20120627
  4. DEPAKIN [Concomitant]
     Dosage: 1750MG PER DAY
     Dates: start: 201010
  5. SEROQUEL [Concomitant]
     Dosage: 400MG PER DAY
     Dates: start: 201010

REACTIONS (3)
  - Pericardial effusion [Not Recovered/Not Resolved]
  - Oedema peripheral [Not Recovered/Not Resolved]
  - Venous insufficiency [Unknown]
